FAERS Safety Report 9512409 (Version 1)
Quarter: 2013Q3

REPORT INFORMATION
  Report Type: Report from Study
  Country: BR (occurrence: BR)
  Receive Date: 20130910
  Receipt Date: 20130910
  Transmission Date: 20140515
  Serious: Yes (Hospitalization, Other)
  Sender: FDA-Public Use
  Company Number: PHHY2013BR098171

PATIENT
  Sex: Female
  Weight: 86 kg

DRUGS (5)
  1. METFORMIN [Suspect]
     Indication: TYPE 2 DIABETES MELLITUS
     Dosage: UNK UKN, UNK
  2. GLIBENCLAMIDE [Suspect]
     Indication: TYPE 2 DIABETES MELLITUS
     Dosage: UNK UKN, TID
  3. LOSARTAN [Suspect]
     Indication: HYPERTENSION
     Dosage: 100 MG, UNK
  4. HYDROCHLOROTHIAZIDE [Suspect]
     Indication: HYPERTENSION
     Dosage: UNK UKN, UNK
  5. NPH INSULIN [Suspect]
     Indication: TYPE 2 DIABETES MELLITUS
     Dosage: 20 IU, UNK

REACTIONS (1)
  - Asthma [Recovered/Resolved]
